FAERS Safety Report 11538866 (Version 1)
Quarter: 2015Q3

REPORT INFORMATION
  Report Type: Spontaneous
  Country: US (occurrence: None)
  Receive Date: 20150922
  Receipt Date: 20150922
  Transmission Date: 20151125
  Serious: Yes (Death)
  Sender: FDA-Public Use
  Company Number: None

PATIENT
  Age: 45 Year
  Weight: 94.8 kg

DRUGS (1)
  1. AMBIEN [Suspect]
     Active Substance: ZOLPIDEM TARTRATE
     Indication: INSOMNIA
     Dosage: 10MG QHS/BEDTIME
     Route: 048
     Dates: start: 20150801, end: 20150828

REACTIONS (2)
  - Somnambulism [None]
  - Asphyxia [None]

NARRATIVE: CASE EVENT DATE: 20150828
